FAERS Safety Report 9929276 (Version 1)
Quarter: 2014Q1

REPORT INFORMATION
  Report Type: Spontaneous
  Country: SE (occurrence: None)
  Receive Date: 20140221
  Receipt Date: 20140221
  Transmission Date: 20141002
  Serious: Yes (Other)
  Sender: FDA-Public Use
  Company Number: SYM-2014-17456

PATIENT
  Age: 76 Year
  Sex: Female

DRUGS (9)
  1. FLAGYL (METRONIDAZOLE) (UNKNOWN) (METRONIDAZOLE) [Suspect]
     Indication: PRODUCT USED FOR UNKNOWN INDICATION
     Dosage: 1 DOSAGE FORMS, ONCE, VAGINAL
     Dates: start: 20130919, end: 20130919
  2. GYNOFLOR (GYNO FLOR E) (ESTRIOL, LACTOBACILLUS ACIDOPHILUS) [Suspect]
     Indication: PRODUCT USED FOR UNKNOWN INDICATION
     Dosage: 1 DOSAGE FORMS, ONCE, VAGINAL
     Dates: start: 20130909, end: 20130909
  3. ATORVASTATIN [Concomitant]
  4. CONDROSULF [Concomitant]
  5. CALCIUM [Concomitant]
  6. VITAMIN D3 [Concomitant]
  7. BACTRIM [Concomitant]
  8. VAGI-HEX [Concomitant]
  9. MONISTAT [Concomitant]

REACTIONS (1)
  - Renal pain [None]
